FAERS Safety Report 25796928 (Version 1)
Quarter: 2025Q3

REPORT INFORMATION
  Report Type: Report from Study
  Country: PH (occurrence: PH)
  Receive Date: 20250912
  Receipt Date: 20250912
  Transmission Date: 20251021
  Serious: Yes (Hospitalization)
  Sender: OTSUKA
  Company Number: PH-MMM-Otsuka-XW2RJD1A

PATIENT
  Sex: Female

DRUGS (3)
  1. TOLVAPTAN [Suspect]
     Active Substance: TOLVAPTAN
     Indication: Diuretic therapy
     Dosage: 0.5 DF, QD (15 MG HALF TABLET ONCE A DAY)
     Route: 048
     Dates: start: 20250808
  2. TOLVAPTAN [Suspect]
     Active Substance: TOLVAPTAN
     Indication: Pulmonary oedema
  3. TOLVAPTAN [Suspect]
     Active Substance: TOLVAPTAN
     Indication: Oedema peripheral

REACTIONS (3)
  - Cardiac failure [Unknown]
  - Wrong technique in product usage process [Unknown]
  - Underdose [Unknown]

NARRATIVE: CASE EVENT DATE: 20250801
